FAERS Safety Report 8236046-5 (Version None)
Quarter: 2012Q1

REPORT INFORMATION
  Report Type: 
  Country: None (occurrence: None)
  Receive Date: 20120326
  Receipt Date: 20120314
  Transmission Date: 20120608
  Serious: Yes (Other)
  Sender: FDA-Public Use
  Company Number: US-VERTEX PHARMACEUTICALS INC.-AE-2012-003611

PATIENT
  Sex: Female

DRUGS (3)
  1. INCIVEK [Suspect]
     Indication: HEPATITIS C
     Route: 048
     Dates: start: 20110912, end: 20111112
  2. PEG-INTRON [Concomitant]
     Indication: HEPATITIS C
     Dates: start: 20110917, end: 20120112
  3. RIBAVIRIN [Concomitant]
     Indication: HEPATITIS C
     Dates: start: 20110912, end: 20120112

REACTIONS (7)
  - RED BLOOD CELL COUNT DECREASED [None]
  - STOMATITIS [None]
  - DRUG INEFFECTIVE [None]
  - DYSPNOEA [None]
  - PNEUMONIA [None]
  - MEMORY IMPAIRMENT [None]
  - WHITE BLOOD CELL COUNT DECREASED [None]
